FAERS Safety Report 5441871-X (Version None)
Quarter: 2007Q3

REPORT INFORMATION
  Report Type: 
  Country: None (occurrence: None)
  Receive Date: 20070830
  Receipt Date: 20070830
  Transmission Date: 20080115
  Serious: Yes (Other)
  Sender: FDA-Public Use
  Company Number: None

PATIENT
  Age: 35 Year
  Sex: Female
  Weight: 49.8957 kg

DRUGS (2)
  1. MINOCIN [Suspect]
     Indication: ACNE
     Dosage: ONCE DAILY PO
     Route: 048
     Dates: start: 20070815, end: 20070825
  2. KLONOPIN [Suspect]
     Indication: TEMPOROMANDIBULAR JOINT SYNDROME
     Dosage: PRN PO
     Route: 048
     Dates: start: 20070823, end: 20070823

REACTIONS (4)
  - ANAPHYLACTIC REACTION [None]
  - DYSPNOEA [None]
  - RASH GENERALISED [None]
  - TONGUE OEDEMA [None]
